FAERS Safety Report 6782588-9 (Version None)
Quarter: 2010Q2

REPORT INFORMATION
  Report Type: 
  Country: None (occurrence: None)
  Receive Date: 20100621
  Receipt Date: 20100611
  Transmission Date: 20101027
  Serious: Yes (Other)
  Sender: FDA-Public Use
  Company Number: JP-ABBOTT-10P-087-0651662-00

PATIENT
  Sex: Male

DRUGS (4)
  1. KLARICID TAB [Suspect]
     Indication: SINUSITIS
     Route: 048
     Dates: start: 20100414, end: 20100509
  2. KLARICID TAB [Suspect]
     Route: 048
     Dates: start: 20100512, end: 20100517
  3. INSULIN ASPART [Concomitant]
     Indication: TYPE 1 DIABETES MELLITUS
     Dosage: 20 UNIT DAILY
     Route: 058
  4. INSULIN DETEMIR [Concomitant]
     Indication: TYPE 1 DIABETES MELLITUS
     Dosage: 9 UNIT DAILY
     Route: 058

REACTIONS (3)
  - CONVULSION [None]
  - HYPOGLYCAEMIA [None]
  - LOSS OF CONSCIOUSNESS [None]
